FAERS Safety Report 24660280 (Version 3)
Quarter: 2025Q2

REPORT INFORMATION
  Report Type: Spontaneous
  Country: IN (occurrence: IN)
  Receive Date: 20241125
  Receipt Date: 20250522
  Transmission Date: 20250717
  Serious: Yes (Other)
  Sender: PFIZER
  Company Number: IN-PFIZER INC-PV202400059338

PATIENT
  Age: 50 Year
  Sex: Female

DRUGS (2)
  1. LORLATINIB [Suspect]
     Active Substance: LORLATINIB
     Indication: Lung cancer metastatic
     Dosage: 100 MG, 1X/DAY
     Route: 048
     Dates: start: 20240203, end: 20240504
  2. LORLATINIB [Suspect]
     Active Substance: LORLATINIB
     Dosage: 75 MG, 1X/DAY
     Route: 048

REACTIONS (24)
  - Bone infarction [Unknown]
  - Joint swelling [Unknown]
  - Periarthritis [Unknown]
  - Bursitis [Unknown]
  - Joint effusion [Unknown]
  - Synovitis [Unknown]
  - Bone marrow oedema [Unknown]
  - Exostosis [Unknown]
  - Meniscus injury [Unknown]
  - Chondropathy [Unknown]
  - Bone cyst [Unknown]
  - Arthralgia [Unknown]
  - Blood calcium decreased [Unknown]
  - Swelling face [Unknown]
  - Heart rate increased [Unknown]
  - Pulmonary mass [Unknown]
  - Musculoskeletal stiffness [Unknown]
  - Blood cholesterol increased [Unknown]
  - Oedema peripheral [Unknown]
  - Headache [Unknown]
  - Blood triglycerides increased [Unknown]
  - Peripheral swelling [Unknown]
  - Loss of personal independence in daily activities [Unknown]
  - Gliosis [Unknown]

NARRATIVE: CASE EVENT DATE: 20240513
